APPROVED DRUG PRODUCT: GLYCOPYRROLATE
Active Ingredient: GLYCOPYRROLATE
Strength: 0.2MG/ML
Dosage Form/Route: INJECTABLE;INJECTION
Application: A088475 | Product #001
Applicant: ABRAXIS PHARMACEUTICAL PRODUCTS
Approved: Jun 12, 1984 | RLD: No | RS: No | Type: DISCN